FAERS Safety Report 9798648 (Version 1)
Quarter: 2014Q1

REPORT INFORMATION
  Report Type: Spontaneous
  Country: DE (occurrence: DE)
  Receive Date: 20140106
  Receipt Date: 20140106
  Transmission Date: 20141002
  Serious: Yes (Life-Threatening, Hospitalization)
  Sender: FDA-Public Use
  Company Number: DE-TEVA-453928GER

PATIENT
  Age: 83 Year
  Sex: Female
  Weight: 61 kg

DRUGS (3)
  1. VERAPAMIL [Suspect]
  2. ELIQUIS [Interacting]
     Dosage: 5 MILLIGRAM DAILY;
  3. METFORMIN 1000 MG [Concomitant]
     Dosage: 1500 MILLIGRAM DAILY;

REACTIONS (2)
  - Subdural haemorrhage [Not Recovered/Not Resolved]
  - Drug interaction [Not Recovered/Not Resolved]
